FAERS Safety Report 9566903 (Version 1)
Quarter: 2013Q3

REPORT INFORMATION
  Report Type: Spontaneous
  Country: US (occurrence: US)
  Receive Date: 20130930
  Receipt Date: 20130930
  Transmission Date: 20140515
  Serious: No
  Sender: FDA-Public Use
  Company Number: US-AMGEN-USASP2012060569

PATIENT
  Sex: Female

DRUGS (17)
  1. ENBREL [Suspect]
     Indication: RHEUMATOID ARTHRITIS
     Dosage: 50 MG, QWK
     Route: 058
  2. FISH OIL [Concomitant]
     Dosage: UNK
  3. FLONASE [Concomitant]
     Dosage: SPR 0.05%
  4. IRON [Concomitant]
     Dosage: 18 MG, UNK
  5. METHOTREXATE [Concomitant]
     Dosage: 2.5 MG, UNK
  6. METOPROLOL [Concomitant]
     Dosage: 50 MG, ER
  7. SELENIUM [Concomitant]
     Dosage: 200 MUG, UNK
  8. TRAMADOL HCL [Concomitant]
     Dosage: 50 MG, UNK
  9. YAZ [Concomitant]
     Dosage: 3-0.02MG
  10. ZOLPIDEM [Concomitant]
     Dosage: 10 MG, UNK
  11. VITAMIN B COMPLEX [Concomitant]
     Dosage: UNK
  12. DILTIAZEM [Concomitant]
     Dosage: 120 MG, CD
  13. DEXILANT [Concomitant]
     Dosage: 30 MG DR, UNK
  14. CYMBALTA [Concomitant]
     Dosage: 30 MG, UNK
  15. MULTIVITAMIN                       /00097801/ [Concomitant]
     Dosage: UNK
  16. ESSENTIAL [Concomitant]
     Dosage: UNK
  17. CALTRATE +VIT.D [Concomitant]
     Dosage: 600 TAB+D

REACTIONS (3)
  - Injection site bruising [Unknown]
  - Injection site mass [Unknown]
  - Injection site pain [Unknown]
